FAERS Safety Report 5722109-2 (Version None)
Quarter: 2008Q2

REPORT INFORMATION
  Report Type: 
  Country: None (occurrence: None)
  Receive Date: 20080429
  Receipt Date: 20080422
  Transmission Date: 20081010
  Serious: Yes (Hospitalization)
  Sender: FDA-Public Use
  Company Number: US-ELI_LILLY_AND_COMPANY-US200804005587

PATIENT
  Sex: Male

DRUGS (2)
  1. HUMULIN N [Suspect]
     Dosage: 24 U, UNK
  2. HUMULIN R [Suspect]

REACTIONS (4)
  - BLOOD GLUCOSE INCREASED [None]
  - DIABETIC KETOACIDOSIS [None]
  - DRUG INEFFECTIVE [None]
  - VOMITING [None]
